FAERS Safety Report 13762652 (Version 1)
Quarter: 2017Q3

REPORT INFORMATION
  Report Type: Spontaneous
  Country: US (occurrence: US)
  Receive Date: 20170718
  Receipt Date: 20170718
  Transmission Date: 20171127
  Serious: Yes (Life-Threatening, Hospitalization, Disabling, Other)
  Sender: FDA-Public Use
  Company Number: None

PATIENT
  Age: 46 Year
  Sex: Female
  Weight: 102.6 kg

DRUGS (7)
  1. SULINDAC. [Concomitant]
     Active Substance: SULINDAC
  2. TUMERIC SUPPLEMENT [Concomitant]
  3. NAPROEN [Concomitant]
  4. METFORMIN [Concomitant]
     Active Substance: METFORMIN HYDROCHLORIDE
  5. IRON LISINOPRIL [Concomitant]
  6. POTASSIUM [Concomitant]
     Active Substance: POTASSIUM
  7. HALDOL [Suspect]
     Active Substance: HALOPERIDOL
     Indication: DEPRESSION
     Dosage: ?          OTHER STRENGTH:MG;QUANTITY:3 INJECTION(S);OTHER FREQUENCY:PER 30 DAYS;?
     Route: 030
     Dates: start: 20170101

REACTIONS (9)
  - Rhinorrhoea [None]
  - Loss of consciousness [None]
  - Pain in extremity [None]
  - Fatigue [None]
  - Productive cough [None]
  - Muscular weakness [None]
  - Muscle rigidity [None]
  - Dyspnoea [None]
  - Pain [None]

NARRATIVE: CASE EVENT DATE: 20170609
